FAERS Safety Report 7541903-9 (Version None)
Quarter: 2011Q2

REPORT INFORMATION
  Report Type: 
  Country: None (occurrence: None)
  Receive Date: 20110524
  Receipt Date: 20110324
  Transmission Date: 20111010
  Serious: No
  Sender: FDA-Public Use
  Company Number: 029980

PATIENT
  Sex: Female
  Weight: 55.3 kg

DRUGS (5)
  1. CIMZIA [Suspect]
     Indication: RHEUMATOID ARTHRITIS
     Dosage: 1 SHOT  (PREFILLED SYRINGE) SUBCUTANEOUS
     Route: 058
     Dates: start: 20101101
  2. METHOTREXATE [Concomitant]
  3. FOLIC ACID [Concomitant]
  4. PREDNISONE [Concomitant]
  5. ALENDRONATE SODIUM [Concomitant]

REACTIONS (4)
  - GASTROENTERITIS VIRAL [None]
  - LACERATION [None]
  - FALL [None]
  - SYNCOPE [None]
